FAERS Safety Report 6570948-0 (Version None)
Quarter: 2010Q1

REPORT INFORMATION
  Report Type: 
  Country: None (occurrence: None)
  Receive Date: 20100204
  Receipt Date: 20100122
  Transmission Date: 20100710
  Serious: Yes (Hospitalization, Other)
  Sender: FDA-Public Use
  Company Number: PHEH2010US01305

PATIENT
  Sex: Male
  Weight: 82.54 kg

DRUGS (5)
  1. EXJADE [Suspect]
     Dosage: 1500 MG DAILY
     Route: 048
     Dates: end: 20100125
  2. DIGOXIN [Concomitant]
     Dosage: 0.125 MG, QD
     Route: 048
  3. PREDNISONE [Concomitant]
     Dosage: 20 MG, TID
     Route: 048
  4. NEXIUM [Concomitant]
     Dosage: 40 MG, QD
     Route: 048
  5. COLACE [Concomitant]
     Dosage: 100 MG, TID
     Route: 048

REACTIONS (9)
  - ANAEMIA [None]
  - EYE DISORDER [None]
  - LUNG NEOPLASM MALIGNANT [None]
  - NEUTROPHIL COUNT DECREASED [None]
  - OCULAR HYPERAEMIA [None]
  - PNEUMONIA [None]
  - TERMINAL STATE [None]
  - THROMBOCYTOPENIA [None]
  - URINARY TRACT INFECTION [None]
